FAERS Safety Report 4413977-5 (Version None)
Quarter: 2004Q3

REPORT INFORMATION
  Report Type: 
  Country: None (occurrence: None)
  Receive Date: 20040728
  Receipt Date: 20040712
  Transmission Date: 20050211
  Serious: Yes (Life-Threatening)
  Sender: FDA-Public Use
  Company Number: 2004046895

PATIENT
  Age: 72 Year
  Sex: Male

DRUGS (9)
  1. AMPICILLIN AND SULBACTAM [Suspect]
     Indication: LUNG DISORDER
     Dosage: 6 GRAM (3 GRAM, 2 IN 1 D), INTRAVENOUS
     Route: 042
     Dates: start: 20040705, end: 20040710
  2. AZITHROMYCIN [Suspect]
     Indication: LUNG DISORDER
     Dosage: 500 MG (500 MG, 1 IN 1 D), INTRAVENOUS; SEE IMAGE
     Dates: start: 20040709, end: 20040710
  3. ACE INHIBITOR NOS [Concomitant]
  4. ENALAPRIL MALEATE [Concomitant]
  5. METFORMIN HCL [Concomitant]
  6. REPAGLINIDE [Concomitant]
  7. DIGOXIN [Concomitant]
  8. FERROUS SULFATE EXSICCATED [Concomitant]
  9. INSULIN [Concomitant]

REACTIONS (3)
  - ANGIONEUROTIC OEDEMA [None]
  - DYSPHAGIA [None]
  - LUNG CONSOLIDATION [None]
